FAERS Safety Report 6444143-X (Version None)
Quarter: 2009Q4

REPORT INFORMATION
  Report Type: 
  Country: None (occurrence: None)
  Receive Date: 20091118
  Receipt Date: 20091105
  Transmission Date: 20100525
  Serious: Yes (Other)
  Sender: FDA-Public Use
  Company Number: CH-BAYER-200937981GPV

PATIENT
  Age: 28 Year
  Sex: Female

DRUGS (3)
  1. ADALAT CC [Suspect]
     Indication: PREMATURE LABOUR
     Dosage: UNIT DOSE: 20 MG
     Route: 048
     Dates: start: 20081101
  2. DEANXIT [Suspect]
     Indication: ANXIETY DISORDER
     Route: 065
  3. LEXOTANIL [Suspect]
     Indication: ANXIETY DISORDER
     Dosage: UNIT DOSE: 1.5 MG
     Route: 048
     Dates: start: 20081115, end: 20081118

REACTIONS (2)
  - CAESAREAN SECTION [None]
  - DRUG EXPOSURE DURING PREGNANCY [None]
